FAERS Safety Report 4371136-9 (Version None)
Quarter: 2004Q2

REPORT INFORMATION
  Report Type: 
  Country: None (occurrence: None)
  Receive Date: 20040601
  Receipt Date: 20040518
  Transmission Date: 20050107
  Serious: Yes (Life-Threatening, Hospitalization, Disabling)
  Sender: FDA-Public Use
  Company Number: US-JNJFOC-20040405248

PATIENT
  Age: 42 Year
  Sex: Female
  Weight: 81.6475 kg

DRUGS (14)
  1. REMICADE [Suspect]
     Indication: RHEUMATOID ARTHRITIS
     Dosage: 400 MG, 1 IN 8 WEEK, INTRAVENOUS
     Route: 042
     Dates: start: 20021206, end: 20040220
  2. METHOTREXATE [Suspect]
     Indication: DRUG USE FOR UNKNOWN INDICATION
     Dosage: 15 MG, 1 IN 1 WEEK, ORAL
     Route: 048
     Dates: start: 19941219, end: 20040301
  3. PREDNISONE [Suspect]
     Indication: DRUG USE FOR UNKNOWN INDICATION
     Dosage: 5-10 MG DAILY
     Dates: start: 19860101
  4. HYDROCHLOROTHIAZIDE [Concomitant]
  5. PRINIVIL [Concomitant]
  6. PAXIL [Concomitant]
  7. TOLECTIN [Concomitant]
  8. FOLIC ACID [Concomitant]
  9. FOSAMAX [Concomitant]
  10. GLUCOPHAGE [Concomitant]
  11. NEXIUM [Concomitant]
  12. VIOXX [Concomitant]
  13. DURAGESIC [Concomitant]
  14. PERCOCET [Concomitant]

REACTIONS (5)
  - ARTHRITIS INFECTIVE [None]
  - FATIGUE [None]
  - HIP ARTHROPLASTY [None]
  - MALAISE [None]
  - STAPHYLOCOCCAL SEPSIS [None]
